FAERS Safety Report 24936956 (Version 1)
Quarter: 2025Q1

REPORT INFORMATION
  Report Type: Spontaneous
  Country: US (occurrence: None)
  Receive Date: 20250206
  Receipt Date: 20250206
  Transmission Date: 20250408
  Serious: No
  Sender: FDA-CTU
  Company Number: None

PATIENT
  Sex: Female

DRUGS (3)
  1. RINVOQ [Suspect]
     Active Substance: UPADACITINIB
     Indication: Dermatitis atopic
     Dosage: FREQUENCY : DAILY;?
     Route: 048
     Dates: start: 202501
  2. RINVOQ [Suspect]
     Active Substance: UPADACITINIB
     Indication: Neurodermatitis
  3. DUPIXENT [Suspect]
     Active Substance: DUPILUMAB

REACTIONS (6)
  - Hypersensitivity [None]
  - Oropharyngeal pain [None]
  - Cough [None]
  - Swelling face [None]
  - Eye swelling [None]
  - Dyspnoea [None]
